FAERS Safety Report 19864734 (Version 1)
Quarter: 2021Q3

REPORT INFORMATION
  Report Type: Spontaneous
  Country: ES (occurrence: ES)
  Receive Date: 20210921
  Receipt Date: 20210921
  Transmission Date: 20211014
  Serious: Yes (Hospitalization)
  Sender: FDA-Public Use
  Company Number: ES-ALVOGEN-2021-ALVOGEN-117524

PATIENT
  Age: 79 Year
  Sex: Male

DRUGS (8)
  1. ATENOLOL. [Suspect]
     Active Substance: ATENOLOL
     Indication: HYPERTENSION
     Route: 048
     Dates: start: 20171130, end: 20210118
  2. MIRABEGRON [Concomitant]
     Active Substance: MIRABEGRON
     Indication: PRODUCT USED FOR UNKNOWN INDICATION
     Dosage: 50 MG AL DIA COMPRIMIDOS
     Route: 048
     Dates: start: 20200130
  3. INSULIN GLARGINE [Concomitant]
     Active Substance: INSULIN GLARGINE
     Indication: DIABETES MELLITUS
     Dosage: 15 UI CADA 24 HORAS
     Route: 058
     Dates: start: 201711
  4. CALCIUM CARBONATE/COLECALCIFEROL [Concomitant]
     Active Substance: CALCIUM CARBONATE\CHOLECALCIFEROL
     Indication: PRODUCT USED FOR UNKNOWN INDICATION
     Dosage: 1.50 G/400 UI 1 COMPRIMIDO CADA 24 HORAS
     Route: 048
     Dates: start: 20190704
  5. PARACETAMOL [Concomitant]
     Active Substance: ACETAMINOPHEN
     Indication: PRODUCT USED FOR UNKNOWN INDICATION
     Dosage: 1 GRAMO CADA 8 HORAS
     Route: 048
     Dates: start: 20191111
  6. ENALAPRIL MALEATE AND HYDROCHLOROTHIAZIDE [Concomitant]
     Active Substance: ENALAPRIL MALEATE\HYDROCHLOROTHIAZIDE
     Indication: PRODUCT USED FOR UNKNOWN INDICATION
     Dosage: 20MG/12.5 MG CADA 24 HORAS
     Route: 048
     Dates: start: 20190819, end: 202108
  7. SIMVASTATIN. [Concomitant]
     Active Substance: SIMVASTATIN
     Indication: PRODUCT USED FOR UNKNOWN INDICATION
     Dosage: 20 MG CADA 24 HORAS
     Route: 048
     Dates: start: 20190618
  8. METFORMIN [Concomitant]
     Active Substance: METFORMIN HYDROCHLORIDE
     Indication: PRODUCT USED FOR UNKNOWN INDICATION
     Dosage: 850 MG CADA 24 HORAS
     Route: 048
     Dates: start: 20171130, end: 202102

REACTIONS (2)
  - Syncope [Recovered/Resolved]
  - Atrioventricular block [Unknown]

NARRATIVE: CASE EVENT DATE: 20210117
